FAERS Safety Report 9951070 (Version 1)
Quarter: 2014Q1

REPORT INFORMATION
  Report Type: Report from Study
  Country: US (occurrence: US)
  Receive Date: 20140304
  Receipt Date: 20140304
  Transmission Date: 20141002
  Serious: No
  Sender: FDA-Public Use
  Company Number: US-ABBVIE-13P-163-1068583-00

PATIENT
  Age: 74 Year
  Sex: Female

DRUGS (9)
  1. HUMIRA [Suspect]
     Indication: PSORIATIC ARTHROPATHY
     Dates: start: 200611
  2. LEVOTHYROXINE [Concomitant]
     Indication: THYROID FUNCTION TEST ABNORMAL
  3. CELEBREX [Concomitant]
     Indication: ARTHRITIS
  4. IC BENAZEPRIL HCL [Concomitant]
     Indication: HYPERTENSION
  5. AMLOPIDINE BESYLATE [Concomitant]
     Indication: HYPERTENSION
  6. CALCIUM [Concomitant]
     Indication: PRODUCT USED FOR UNKNOWN INDICATION
  7. BABY ASA [Concomitant]
     Indication: PRODUCT USED FOR UNKNOWN INDICATION
  8. IMITREX [Concomitant]
     Indication: MIGRAINE
  9. XANAX [Concomitant]
     Indication: INSOMNIA
     Dosage: HARDLY EVEN NEEDS IT

REACTIONS (4)
  - Device malfunction [Recovered/Resolved]
  - Incorrect dose administered [Recovered/Resolved]
  - Psoriatic arthropathy [Unknown]
  - Injection site pain [Unknown]
